FAERS Safety Report 5511913-1 (Version None)
Quarter: 2007Q4

REPORT INFORMATION
  Report Type: 
  Country: None (occurrence: None)
  Receive Date: 20071109
  Receipt Date: 20071029
  Transmission Date: 20080405
  Serious: Yes (Other)
  Sender: FDA-Public Use
  Company Number: JP-PFIZER INC-2007091681

PATIENT
  Sex: Male

DRUGS (1)
  1. HALCION [Suspect]
     Route: 048

REACTIONS (3)
  - ACCIDENT [None]
  - MEMORY IMPAIRMENT [None]
  - OVERDOSE [None]
